FAERS Safety Report 9662005 (Version 1)
Quarter: 2013Q4

REPORT INFORMATION
  Report Type: Spontaneous
  Country: US (occurrence: US)
  Receive Date: 20131031
  Receipt Date: 20131031
  Transmission Date: 20140711
  Serious: Yes (Death)
  Sender: FDA-Public Use
  Company Number: US-NAPPMUNDI-USA-2011-0067642

PATIENT
  Sex: Male

DRUGS (3)
  1. OXYCONTIN (NDA 22-272) [Suspect]
     Indication: SUBSTANCE ABUSE
     Route: 048
  2. METHADONE [Suspect]
     Indication: SUBSTANCE ABUSE
     Route: 048
  3. ALCOHOL [Suspect]
     Indication: SUBSTANCE ABUSE
     Route: 048

REACTIONS (1)
  - Substance abuse [Fatal]
